FAERS Safety Report 7509796-3 (Version None)
Quarter: 2011Q2

REPORT INFORMATION
  Report Type: 
  Country: None (occurrence: None)
  Receive Date: 20110527
  Receipt Date: 20110513
  Transmission Date: 20111010
  Serious: Yes (Hospitalization)
  Sender: FDA-Public Use
  Company Number: A0784458A

PATIENT
  Age: 67 Year
  Sex: Female
  Weight: 64 kg

DRUGS (14)
  1. SYNTHROID [Concomitant]
  2. ATACAND [Concomitant]
  3. SPIRONOLACTONE [Concomitant]
  4. ALDACTONE [Concomitant]
  5. DIGOXIN [Concomitant]
  6. COREG [Concomitant]
  7. AVANDIA [Suspect]
     Indication: DIABETES MELLITUS
     Route: 048
     Dates: start: 20000101, end: 20070501
  8. LASIX [Concomitant]
  9. PLAVIX [Concomitant]
  10. ASPIRIN [Concomitant]
  11. LIPITOR [Concomitant]
  12. POTASSIUM CHLORIDE [Concomitant]
  13. GLIPIZIDE [Concomitant]
  14. COUMADIN [Concomitant]

REACTIONS (5)
  - ISCHAEMIC CARDIOMYOPATHY [None]
  - CARDIAC FAILURE CONGESTIVE [None]
  - MYOCARDIAL INFARCTION [None]
  - MITRAL VALVE INCOMPETENCE [None]
  - TRICUSPID VALVE INCOMPETENCE [None]
